FAERS Safety Report 7258418 (Version 2)
Quarter: 2014Q1

REPORT INFORMATION
  Report Type: Spontaneous
  Country: US (occurrence: US)
  Receive Date: 20100127
  Receipt Date: 20140130
  Transmission Date: 20141002
  Serious: Yes (Hospitalization)
  Sender: FDA-Public Use
  Company Number: US-JNJFOC-20100108013

PATIENT
  Age: 34 Year
  Sex: Female
  Weight: 49.9 kg

DRUGS (6)
  1. DURAGESIC [Suspect]
     Indication: FIBROMYALGIA
     Route: 062
     Dates: start: 2001, end: 20100101
  2. DURAGESIC [Suspect]
     Indication: MIGRAINE
     Route: 062
     Dates: start: 2001, end: 20100101
  3. DURAGESIC [Suspect]
     Indication: FIBROMYALGIA
     Route: 062
     Dates: start: 20100101
  4. DURAGESIC [Suspect]
     Indication: MIGRAINE
     Route: 062
     Dates: start: 20100101
  5. TREXIMET [Concomitant]
     Indication: MIGRAINE
     Route: 048
     Dates: start: 2008
  6. PERCOCET [Concomitant]
     Indication: PAIN
     Route: 048

REACTIONS (4)
  - Back disorder [Recovered/Resolved]
  - Product quality issue [Unknown]
  - Wrong technique in drug usage process [Not Recovered/Not Resolved]
  - Therapeutic response decreased [Not Recovered/Not Resolved]
